FAERS Safety Report 13208637 (Version 1)
Quarter: 2017Q1

REPORT INFORMATION
  Report Type: Spontaneous
  Country: GB (occurrence: GB)
  Receive Date: 20170209
  Receipt Date: 20170209
  Transmission Date: 20170428
  Serious: Yes (Hospitalization)
  Sender: FDA-Public Use
  Company Number: GB-BAYER-2017-026578

PATIENT
  Age: 78 Year
  Sex: Female

DRUGS (3)
  1. SALBUTAMOL [Concomitant]
     Active Substance: ALBUTEROL
     Indication: ASTHMA
     Dosage: 100 ?G, PRN
     Route: 045
  2. ASPIRIN. [Suspect]
     Active Substance: ASPIRIN
     Dosage: UNK
  3. SERETIDE [Concomitant]
     Active Substance: FLUTICASONE PROPIONATE\SALMETEROL XINAFOATE
     Indication: ASTHMA
     Dosage: 1 DF, BID
     Route: 045

REACTIONS (3)
  - Malaise [Recovering/Resolving]
  - Troponin increased [Recovering/Resolving]
  - Bronchospasm [Recovering/Resolving]
